FAERS Safety Report 7470911-1 (Version None)
Quarter: 2011Q2

REPORT INFORMATION
  Report Type: 
  Country: None (occurrence: None)
  Receive Date: 20110506
  Receipt Date: 20110506
  Transmission Date: 20111010
  Serious: Yes (Other)
  Sender: FDA-Public Use
  Company Number: None

PATIENT
  Age: 64 Year
  Sex: Female
  Weight: 54.4316 kg

DRUGS (1)
  1. BOTOX [Suspect]
     Indication: SKIN WRINKLING
     Dosage: 45 UNITS ONCE
     Dates: start: 20110217

REACTIONS (3)
  - CONTUSION [None]
  - HAEMORRHAGE SUBCUTANEOUS [None]
  - VIITH NERVE PARALYSIS [None]
